FAERS Safety Report 9166403 (Version 3)
Quarter: 2013Q2

REPORT INFORMATION
  Report Type: Report from Study
  Country: MX (occurrence: MX)
  Receive Date: 20130315
  Receipt Date: 20130417
  Transmission Date: 20140414
  Serious: Yes (Hospitalization, Disabling, Other)
  Sender: FDA-Public Use
  Company Number: PHHY2013MX025652

PATIENT
  Age: 67 Year
  Sex: Male

DRUGS (6)
  1. EXELON PATCH [Suspect]
     Indication: DEMENTIA ALZHEIMER^S TYPE
     Dosage: 4.6 MG, DAILY
     Route: 062
  2. EXELON PATCH [Suspect]
     Dosage: 9.5 MG, DAILY
     Route: 062
     Dates: start: 201107
  3. SERENATA [Concomitant]
     Indication: DEPRESSION
     Dosage: 1 DF, QD
  4. MADOPAR [Concomitant]
     Dosage: 1 DF, QD
     Dates: start: 2012
  5. NIAR [Concomitant]
     Dosage: 1 DF, QD
     Dates: start: 2010
  6. AMLODIPINO//AMLODIPINE [Concomitant]
     Dosage: 1 DF, QD

REACTIONS (3)
  - Pneumonia [Recovered/Resolved]
  - Cerebrovascular accident [Unknown]
  - Abasia [Unknown]
